FAERS Safety Report 20734527 (Version 1)
Quarter: 2022Q2

REPORT INFORMATION
  Report Type: Spontaneous
  Country: KR (occurrence: KR)
  Receive Date: 20220421
  Receipt Date: 20220421
  Transmission Date: 20220721
  Serious: Yes (Hospitalization, Other)
  Sender: FDA-Public Use
  Company Number: KR-ORGANON-O2204KOR001190

PATIENT
  Age: 75 Year
  Sex: Female
  Weight: 48.3 kg

DRUGS (13)
  1. ATORVASTATIN CALCIUM\EZETIMIBE [Suspect]
     Active Substance: ATORVASTATIN CALCIUM\EZETIMIBE
     Indication: Hypertension
     Dosage: 1 TABLET, QD
     Route: 048
     Dates: start: 20211117, end: 20220217
  2. SASANLIMAB [Suspect]
     Active Substance: SASANLIMAB
     Indication: Bladder cancer
     Dosage: 300 MG, EVERY 4 WEEKS
     Route: 058
     Dates: start: 20210512, end: 20211123
  3. BCG VACCINE [Suspect]
     Active Substance: BCG VACCINE
     Indication: Bladder cancer
     Dosage: 50 MILLILITER (ML), INDUCTION AND MAINTENANCE PERIOD (PER PROTOCOL ARM A)
     Route: 043
     Dates: start: 20210518
  4. GEMIGLIPTIN\METFORMIN [Suspect]
     Active Substance: GEMIGLIPTIN\METFORMIN
     Indication: Diabetes mellitus
     Dosage: GEMIGLIPTIN TARTRATE 50MG/ METFORMIN HYDROCHLORIDE  500MG SR,1 TABLET, QD
     Route: 048
     Dates: start: 20211117, end: 20220219
  5. MELATONIN [Suspect]
     Active Substance: MELATONIN
     Indication: Insomnia
     Dosage: 2 MILLIGRAM, QD
     Route: 065
     Dates: start: 20211216, end: 20220219
  6. ZOLPIDEM TARTRATE [Suspect]
     Active Substance: ZOLPIDEM TARTRATE
     Indication: Insomnia
     Dosage: 5 MILLIGRAM, PRN
     Route: 048
     Dates: start: 20211216, end: 20220219
  7. ZOLPIDEM TARTRATE [Suspect]
     Active Substance: ZOLPIDEM TARTRATE
     Dosage: 5 MILLIGRAM, QD
     Route: 048
     Dates: start: 20220124, end: 20220203
  8. RIVOTRIL [Suspect]
     Active Substance: CLONAZEPAM
     Indication: Insomnia
     Dosage: 0.5 MILLIGRAM, QD
     Route: 048
     Dates: start: 20220124, end: 20220219
  9. LEVOTHYROXINE SODIUM [Concomitant]
     Active Substance: LEVOTHYROXINE SODIUM
     Dosage: UNK
     Dates: start: 20211101
  10. TRESIBA [Concomitant]
     Active Substance: INSULIN DEGLUDEC
     Dosage: UNK
     Dates: start: 20211117
  11. LEVACALM [Concomitant]
     Dosage: UNK
     Dates: start: 20211117
  12. MYUNGIN TRAZODONE [Concomitant]
     Dosage: UNK
     Dates: start: 20220124
  13. URSODIOL [Concomitant]
     Active Substance: URSODIOL
     Dosage: UNK
     Dates: start: 20220217

REACTIONS (1)
  - Hepatitis A [Recovered/Resolved]

NARRATIVE: CASE EVENT DATE: 20220217
